FAERS Safety Report 7133365-0 (Version None)
Quarter: 2010Q4

REPORT INFORMATION
  Report Type: 
  Country: None (occurrence: None)
  Receive Date: 20101202
  Receipt Date: 20101130
  Transmission Date: 20110411
  Serious: Yes (Death, Other)
  Sender: FDA-Public Use
  Company Number: US-B.I. PHARMACEUTICALS,INC./RIDGEFIELD-2010-BP-13375BP

PATIENT
  Sex: Female

DRUGS (3)
  1. ATROVENT HFA [Suspect]
     Indication: PNEUMONIA
  2. XOPENEX [Suspect]
     Indication: PNEUMONIA
     Route: 055
     Dates: start: 20101001, end: 20101001
  3. BROVANA [Concomitant]

REACTIONS (3)
  - ASTHENIA [None]
  - DEATH [None]
  - PLEURAL EFFUSION [None]
